FAERS Safety Report 9425770 (Version 1)
Quarter: 2013Q3

REPORT INFORMATION
  Report Type: Spontaneous
  Country: FR (occurrence: FR)
  Receive Date: 20130729
  Receipt Date: 20130729
  Transmission Date: 20140515
  Serious: Yes (Death, Hospitalization)
  Sender: FDA-Public Use
  Company Number: FR-B.I. PHARMACEUTICALS,INC./RIDGEFIELD-2013-FF-01945FF

PATIENT
  Age: 83 Year
  Sex: Male
  Weight: 70 kg

DRUGS (8)
  1. PRADAXA [Suspect]
     Indication: THROMBOSIS PROPHYLAXIS
     Dosage: 220 MG
     Route: 048
     Dates: start: 20120922, end: 20130429
  2. VOLTARENE [Suspect]
     Indication: INFLAMMATION
     Route: 061
     Dates: start: 20130201, end: 20130429
  3. VOLTARENE [Suspect]
     Indication: PAIN
  4. BIPROFENID [Suspect]
     Indication: INFLAMMATION
     Dosage: 200 MG
     Route: 048
     Dates: start: 20130423, end: 20130429
  5. BIPROFENID [Suspect]
     Indication: PAIN
  6. ODRIK [Concomitant]
     Indication: ATRIAL FIBRILLATION
     Dosage: 0.5 MG
     Route: 048
     Dates: start: 20130201, end: 20130429
  7. TANAKAN [Concomitant]
     Indication: ATRIAL FIBRILLATION
     Dosage: 120 MG
     Route: 048
     Dates: start: 20130201, end: 20130429
  8. DOLIPRANE [Concomitant]
     Indication: PAIN
     Dosage: 3000 MG
     Route: 048
     Dates: start: 20130201, end: 20130429

REACTIONS (1)
  - Rectal haemorrhage [Fatal]
